FAERS Safety Report 18702117 (Version 2)
Quarter: 2021Q1

REPORT INFORMATION
  Report Type: Spontaneous
  Country: IN (occurrence: IN)
  Receive Date: 20210105
  Receipt Date: 20210112
  Transmission Date: 20210419
  Serious: Yes (Hospitalization, Other)
  Sender: FDA-Public Use
  Company Number: IN-VISTAPHARM, INC.-VER202012-002249

PATIENT
  Age: 3 Year
  Sex: Male
  Weight: 10 kg

DRUGS (1)
  1. HYDROCODONE AND ACETAMINOPHEN [Suspect]
     Active Substance: ACETAMINOPHEN\HYDROCODONE
     Indication: PRODUCT USED FOR UNKNOWN INDICATION
     Dosage: 40 ML OF SYRUP PARACETAMOL 250 MG/5ML (200 MG/KG)

REACTIONS (6)
  - Seizure [Unknown]
  - Toxicity to various agents [Unknown]
  - Toxic leukoencephalopathy [Unknown]
  - Blindness cortical [Not Recovered/Not Resolved]
  - Respiratory distress [Unknown]
  - Depressed level of consciousness [Recovered/Resolved]
